FAERS Safety Report 12896141 (Version 1)
Quarter: 2016Q4

REPORT INFORMATION
  Report Type: Spontaneous
  Country: US (occurrence: US)
  Receive Date: 20161031
  Receipt Date: 20161031
  Transmission Date: 20170207
  Serious: No
  Sender: FDA-Public Use
  Company Number: US-JAZZ-2016-US-016032

PATIENT
  Sex: Female

DRUGS (40)
  1. XYREM [Suspect]
     Active Substance: SODIUM OXYBATE
     Dosage: 4.5 G, BID
     Route: 048
     Dates: start: 201501
  2. ZONISAMIDE. [Concomitant]
     Active Substance: ZONISAMIDE
     Indication: HEAD TITUBATION
  3. ZYRTEC [Concomitant]
     Active Substance: CETIRIZINE HYDROCHLORIDE
     Indication: EAR CONGESTION
  4. SINGULAIR [Concomitant]
     Active Substance: MONTELUKAST SODIUM
     Indication: EAR CONGESTION
  5. FLONASE [Concomitant]
     Active Substance: FLUTICASONE PROPIONATE
     Indication: HYPERSENSITIVITY
  6. LEVOTHYROXINE. [Concomitant]
     Active Substance: LEVOTHYROXINE
     Indication: HYPOTHYROIDISM
  7. OSCAL [Concomitant]
     Active Substance: CALCIUM CARBONATE
     Indication: SUPPLEMENTATION THERAPY
  8. ACIPHEX [Concomitant]
     Active Substance: RABEPRAZOLE SODIUM
  9. SKELAXIN [Concomitant]
     Active Substance: METAXALONE
  10. CYMBALTA [Concomitant]
     Active Substance: DULOXETINE HYDROCHLORIDE
  11. ACETYLSALICYLIC ACID [Concomitant]
     Active Substance: ASPIRIN
     Indication: CEREBRAL DISORDER
  12. PROTONIX [Concomitant]
     Active Substance: PANTOPRAZOLE SODIUM
  13. XYREM [Suspect]
     Active Substance: SODIUM OXYBATE
     Dosage: 3 G, BID
     Dates: start: 201411, end: 201501
  14. LASIX [Concomitant]
     Active Substance: FUROSEMIDE
     Indication: FLUID RETENTION
  15. POTASSIUM [Concomitant]
     Active Substance: POTASSIUM
  16. COMPLETENATE [Concomitant]
  17. SUPER B COMPLEX [Concomitant]
     Active Substance: CYANOCOBALAMIN\DEXPANTHENOL\NIACINAMIDE\PYRIDOXINE HYDROCHLORIDE\RIBOFLAVIN 5^-PHOSPHATE SODIUM\THIAMINE HYDROCHLORIDE\VITAMIN B COMPLEX
  18. HYDROCODONE/ACETAMINOPHEN [Concomitant]
     Active Substance: ACETAMINOPHEN\HYDROCODONE
  19. PROBIOTIC [Concomitant]
     Active Substance: PROBIOTICS NOS
  20. XYREM [Suspect]
     Active Substance: SODIUM OXYBATE
     Indication: NARCOLEPSY
     Dosage: 2.25 G, BID
     Route: 048
     Dates: start: 200907, end: 200908
  21. FLONASE [Concomitant]
     Active Substance: FLUTICASONE PROPIONATE
     Indication: EAR CONGESTION
  22. MULTIVITAMIN [Concomitant]
     Active Substance: VITAMINS
  23. CITALOPRAM [Concomitant]
     Active Substance: CITALOPRAM HYDROBROMIDE
     Indication: ILL-DEFINED DISORDER
  24. CITALOPRAM [Concomitant]
     Active Substance: CITALOPRAM HYDROBROMIDE
  25. ZONEGRAN [Concomitant]
     Active Substance: ZONISAMIDE
  26. XYREM [Suspect]
     Active Substance: SODIUM OXYBATE
     Dosage: 3 G, BID
     Route: 048
     Dates: start: 200908, end: 2012
  27. ZYRTEC [Concomitant]
     Active Substance: CETIRIZINE HYDROCHLORIDE
     Indication: HYPERSENSITIVITY
  28. SINGULAIR [Concomitant]
     Active Substance: MONTELUKAST SODIUM
     Indication: HYPERSENSITIVITY
  29. LEVOXYL [Concomitant]
     Active Substance: LEVOTHYROXINE SODIUM
  30. GABAPENTIN. [Concomitant]
     Active Substance: GABAPENTIN
  31. XYREM [Suspect]
     Active Substance: SODIUM OXYBATE
     Dosage: 2.25 G, BID
     Route: 048
     Dates: start: 201410, end: 201411
  32. CEVIMELINE HCL [Concomitant]
     Active Substance: CEVIMELINE HYDROCHLORIDE
  33. LISINOPRIL. [Concomitant]
     Active Substance: LISINOPRIL
  34. MIRAPEX [Concomitant]
     Active Substance: PRAMIPEXOLE DIHYDROCHLORIDE
  35. NEXIUM [Concomitant]
     Active Substance: ESOMEPRAZOLE MAGNESIUM
  36. PROVIGIL [Concomitant]
     Active Substance: MODAFINIL
  37. NORCO [Concomitant]
     Active Substance: ACETAMINOPHEN\HYDROCODONE BITARTRATE
  38. VITAMIN D [Concomitant]
     Active Substance: CHOLECALCIFEROL
  39. CELEXA [Concomitant]
     Active Substance: CITALOPRAM HYDROBROMIDE
  40. NUVIGIL [Concomitant]
     Active Substance: ARMODAFINIL

REACTIONS (7)
  - Contusion [Not Recovered/Not Resolved]
  - Ear congestion [Unknown]
  - Fall [Recovered/Resolved]
  - Gait disturbance [Not Recovered/Not Resolved]
  - Dizziness [Not Recovered/Not Resolved]
  - Peripheral swelling [Unknown]
  - Hypersensitivity [Not Recovered/Not Resolved]

NARRATIVE: CASE EVENT DATE: 2015
